FAERS Safety Report 25212589 (Version 1)
Quarter: 2025Q2

REPORT INFORMATION
  Report Type: Spontaneous
  Country: JP (occurrence: JP)
  Receive Date: 20250418
  Receipt Date: 20250418
  Transmission Date: 20250716
  Serious: Yes (Other)
  Sender: TAKEDA
  Company Number: JP-TAKEDA-2025TUS037863

PATIENT
  Age: 37 Year
  Sex: Male

DRUGS (5)
  1. LIALDA [Suspect]
     Active Substance: MESALAMINE
     Indication: Colitis ulcerative
     Dosage: 4800 MILLIGRAM, QD
     Dates: start: 20221130
  2. VEDOLIZUMAB [Suspect]
     Active Substance: VEDOLIZUMAB
     Indication: Colitis ulcerative
     Dates: start: 20221226, end: 20230608
  3. FILGOTINIB MALEATE [Concomitant]
     Active Substance: FILGOTINIB MALEATE
     Indication: Colitis ulcerative
     Dosage: 200 MILLIGRAM, QD
     Dates: start: 20221212, end: 20221226
  4. PREDNISOLONE [Concomitant]
     Active Substance: PREDNISOLONE
     Indication: Colitis ulcerative
     Dosage: 30 MILLIGRAM, QD
     Dates: start: 20221017
  5. UPADACITINIB HEMIHYDRATE [Concomitant]
     Active Substance: UPADACITINIB HEMIHYDRATE
     Indication: Colitis ulcerative

REACTIONS (5)
  - Spondylitis [Recovering/Resolving]
  - Condition aggravated [Recovering/Resolving]
  - Sacral pain [Not Recovered/Not Resolved]
  - Enteropathic spondylitis [Recovering/Resolving]
  - Drug ineffective [Unknown]

NARRATIVE: CASE EVENT DATE: 20230601
